FAERS Safety Report 15492914 (Version 1)
Quarter: 2018Q4

REPORT INFORMATION
  Report Type: Spontaneous
  Country: US (occurrence: US)
  Receive Date: 20181004
  Receipt Date: 20181004
  Transmission Date: 20190205
  Serious: Yes (Hospitalization)
  Sender: FDA-Public Use
  Company Number: None

PATIENT
  Age: 55 Year
  Sex: Female
  Weight: 52 kg

DRUGS (2)
  1. PEMBROLIZUMAB. [Suspect]
     Active Substance: PEMBROLIZUMAB
     Indication: COLORECTAL CANCER
     Route: 042
     Dates: start: 20180726, end: 20180814
  2. IBRUTINIB [Concomitant]
     Active Substance: IBRUTINIB
     Dates: start: 20180726, end: 20180904

REACTIONS (1)
  - Vena cava thrombosis [None]

NARRATIVE: CASE EVENT DATE: 20180904
